FAERS Safety Report 10137253 (Version 1)
Quarter: 2014Q2

REPORT INFORMATION
  Report Type: Report from Study
  Country: US (occurrence: US)
  Receive Date: 20140429
  Receipt Date: 20140429
  Transmission Date: 20141212
  Serious: No
  Sender: FDA-Public Use
  Company Number: US-ABBVIE-14P-163-1211900-00

PATIENT
  Sex: Male
  Weight: 61.29 kg

DRUGS (2)
  1. ANDROGEL [Suspect]
     Indication: BLOOD TESTOSTERONE DECREASED
     Route: 061
     Dates: start: 201311
  2. NITRO PATCH [Concomitant]
     Indication: CARDIAC DISORDER

REACTIONS (1)
  - Erythema [Not Recovered/Not Resolved]
